FAERS Safety Report 5822094-9 (Version None)
Quarter: 2008Q3

REPORT INFORMATION
  Report Type: 
  Country: None (occurrence: None)
  Receive Date: 20080722
  Receipt Date: 20080722
  Transmission Date: 20090109
  Serious: No
  Sender: FDA-Public Use
  Company Number: None

PATIENT
  Sex: Male
  Weight: 15.8759 kg

DRUGS (1)
  1. VALPROIC ACID [Suspect]
     Dosage: 250MG/5CC 8CC-BID PO
     Route: 048

REACTIONS (1)
  - DRUG EFFECT DECREASED [None]
